FAERS Safety Report 23364160 (Version 1)
Quarter: 2024Q1

REPORT INFORMATION
  Report Type: Spontaneous
  Country: US (occurrence: US)
  Receive Date: 20240104
  Receipt Date: 20240104
  Transmission Date: 20240410
  Serious: No
  Sender: FDA-Public Use
  Company Number: US-APOTEX-2023AP016405

PATIENT
  Sex: Female

DRUGS (1)
  1. OLOPATADINE HYDROCHLORIDE [Suspect]
     Active Substance: OLOPATADINE HYDROCHLORIDE
     Indication: Product used for unknown indication
     Dosage: 4 DOSAGE FORM, BID (2 SPRAYS IN EACH NOSTRIL TWICE A DAY)
     Route: 045
     Dates: start: 202310, end: 202310

REACTIONS (6)
  - Increased viscosity of upper respiratory secretion [Unknown]
  - Sinonasal obstruction [Unknown]
  - Product substitution issue [Unknown]
  - Therapy cessation [Unknown]
  - Nasal discomfort [Unknown]
  - Headache [Unknown]

NARRATIVE: CASE EVENT DATE: 20231001
